FAERS Safety Report 10036525 (Version 1)
Quarter: 2014Q1

REPORT INFORMATION
  Report Type: Report from Study
  Country: TH (occurrence: TH)
  Receive Date: 20140326
  Receipt Date: 20140326
  Transmission Date: 20141002
  Serious: Yes (Death)
  Sender: FDA-Public Use
  Company Number: PHHY2014TH035948

PATIENT
  Age: 86 Year
  Sex: Male

DRUGS (2)
  1. ACLASTA [Suspect]
     Indication: OSTEOPOROSIS
     Dosage: UNK UKN, UNK
     Route: 042
     Dates: start: 2013
  2. CALCIUM [Concomitant]
     Dosage: UNK UKN, UNK

REACTIONS (1)
  - Lung infection [Fatal]
